FAERS Safety Report 16758191 (Version 2)
Quarter: 2019Q3

REPORT INFORMATION
  Report Type: Spontaneous
  Country: US (occurrence: US)
  Receive Date: 20190830
  Receipt Date: 20190923
  Transmission Date: 20191005
  Serious: No
  Sender: FDA-Public Use
  Company Number: US-009507513-1908USA008707

PATIENT
  Sex: Male

DRUGS (11)
  1. ABILIFY [Suspect]
     Active Substance: ARIPIPRAZOLE
     Indication: PRODUCT USED FOR UNKNOWN INDICATION
     Route: 048
  2. CYANOCOBALAMIN (+) LEVOMEFOLATE CALCIUM (+) PYRIDOXINE (+) RIBOFLAVIN [Suspect]
     Active Substance: CYANOCOBALAMIN\LEVOMEFOLATE CALCIUM\PYRIDOXINE\RIBOFLAVIN
     Indication: PRODUCT USED FOR UNKNOWN INDICATION
     Dosage: 2 TABLETS, QAM, INDICATION: METABOLIZE MEDICATIONS
     Route: 048
     Dates: start: 201807
  3. BUSPIRONE HYDROCHLORIDE. [Suspect]
     Active Substance: BUSPIRONE HYDROCHLORIDE
     Indication: OBSESSIVE-COMPULSIVE DISORDER
     Dosage: 5 MILLIGRAM, QAM
     Route: 048
     Dates: start: 201610
  4. CLONAZEPAM. [Suspect]
     Active Substance: CLONAZEPAM
     Indication: PANIC ATTACK
     Dosage: 0.5 MG, PRN
     Dates: start: 201303
  5. PRISTIQ EXTENDED-RELEASE [Suspect]
     Active Substance: DESVENLAFAXINE SUCCINATE
     Indication: MAJOR DEPRESSION
  6. REMERON [Suspect]
     Active Substance: MIRTAZAPINE
     Indication: PRODUCT USED FOR UNKNOWN INDICATION
     Route: 048
  7. LAMICTAL [Suspect]
     Active Substance: LAMOTRIGINE
     Indication: AFFECTIVE DISORDER
     Dosage: 2 TABLETS, QAM
     Route: 048
     Dates: start: 201810
  8. CLONAZEPAM. [Suspect]
     Active Substance: CLONAZEPAM
     Indication: ANXIETY
  9. BUSPIRONE HYDROCHLORIDE. [Suspect]
     Active Substance: BUSPIRONE HYDROCHLORIDE
     Dosage: 10 MILLIGRAM, QD (AT NIGHT)
     Route: 048
     Dates: start: 201610
  10. LAMICTAL [Suspect]
     Active Substance: LAMOTRIGINE
     Indication: ANXIETY
  11. PRISTIQ EXTENDED-RELEASE [Suspect]
     Active Substance: DESVENLAFAXINE SUCCINATE
     Indication: GENERALISED ANXIETY DISORDER
     Dosage: 150 MILLIGRAM, QAM
     Route: 048

REACTIONS (5)
  - Hepatic pain [Unknown]
  - Mania [Unknown]
  - Vomiting [Unknown]
  - Malaise [Unknown]
  - Dystonia [Unknown]
